FAERS Safety Report 5958344-8 (Version None)
Quarter: 2008Q4

REPORT INFORMATION
  Report Type: 
  Country: None (occurrence: None)
  Receive Date: 20081117
  Receipt Date: 20081107
  Transmission Date: 20090506
  Serious: Yes (Life-Threatening, Hospitalization)
  Sender: FDA-Public Use
  Company Number: 104341

PATIENT
  Age: 76 Year
  Sex: Male

DRUGS (13)
  1. SIMVASTATIN [Suspect]
     Indication: DYSLIPIDAEMIA
     Dosage: 80 MG/ DAILY/ ORAL
     Route: 048
  2. SITAGLIPTIN 100 MG [Suspect]
     Indication: TYPE 2 DIABETES MELLITUS
     Dosage: 100 MG/ DAILY
  3. ASPIRIN [Concomitant]
  4. CLOPIDOGREL [Concomitant]
  5. OLMESARTAN MEDOXOMIL [Concomitant]
  6. CARVEDILOL [Concomitant]
  7. INSULIN [Concomitant]
  8. METOLAZONE [Concomitant]
  9. AMIODARONE HCL [Concomitant]
  10. BUMETANIDE [Concomitant]
  11. GLIPIZIDE [Concomitant]
  12. LEVOTHYROXINE SODIUM [Concomitant]
  13. EZETIMIBE 10 MG [Concomitant]

REACTIONS (2)
  - RENAL FAILURE ACUTE [None]
  - RHABDOMYOLYSIS [None]
